FAERS Safety Report 4546070-1 (Version None)
Quarter: 2005Q1

REPORT INFORMATION
  Report Type: 
  Country: None (occurrence: None)
  Receive Date: 20050105
  Receipt Date: 20050105
  Transmission Date: 20050727
  Serious: Yes (Hospitalization)
  Sender: FDA-Public Use
  Company Number: None

PATIENT
  Age: 70 Year
  Sex: Female
  Weight: 73.9 kg

DRUGS (12)
  1. ASPIRIN [Suspect]
     Indication: MITRAL VALVE PROLAPSE
     Dosage: ASPIRIN 81 MG DAILY
  2. ASPIRIN [Suspect]
     Indication: PULMONARY EMBOLISM
     Dosage: ASPIRIN 81 MG DAILY
  3. ASPIRIN [Suspect]
     Indication: TRANSIENT ISCHAEMIC ATTACK
     Dosage: ASPIRIN 81 MG DAILY
  4. PLAVIX [Suspect]
     Dosage: PLAVIX 75 MG DAILY
  5. COUMADIN [Suspect]
     Dosage: COUMADIN 8MG ALTERNATING WITH 6MG QOD
  6. PROCARDIA [Concomitant]
  7. TUMS [Concomitant]
  8. PREVACID [Concomitant]
  9. TOPROL-XL [Concomitant]
  10. PLAVIX [Concomitant]
  11. CRESTOR [Concomitant]
  12. KEFLEX [Concomitant]

REACTIONS (1)
  - RECTAL HAEMORRHAGE [None]
